FAERS Safety Report 14063533 (Version 1)
Quarter: 2017Q4

REPORT INFORMATION
  Report Type: Spontaneous
  Country: GB (occurrence: GB)
  Receive Date: 20171009
  Receipt Date: 20171009
  Transmission Date: 20180321
  Serious: Yes (Other)
  Sender: FDA-Public Use
  Company Number: GB-IPSEN BIOPHARMACEUTICALS, INC.-2017-11616

PATIENT
  Sex: Female

DRUGS (2)
  1. AZZALURE [Suspect]
     Active Substance: BOTULINUM TOXIN TYPE A
     Indication: SKIN WRINKLING
  2. AZZALURE [Suspect]
     Active Substance: BOTULINUM TOXIN TYPE A
     Indication: SKIN WRINKLING
     Dosage: NOT REPORTED
     Route: 065
     Dates: start: 201709, end: 201709

REACTIONS (6)
  - Neuromuscular toxicity [Not Recovered/Not Resolved]
  - Panic attack [Unknown]
  - Malaise [Unknown]
  - Influenza [Unknown]
  - Renal pain [Unknown]
  - Headache [Unknown]

NARRATIVE: CASE EVENT DATE: 2017
